FAERS Safety Report 23546307 (Version 1)
Quarter: 2024Q1

REPORT INFORMATION
  Report Type: Spontaneous
  Country: CN (occurrence: CN)
  Receive Date: 20240220
  Receipt Date: 20240220
  Transmission Date: 20240409
  Serious: Yes (Other)
  Sender: FDA-Public Use
  Company Number: CN-91440300279544901A-J2024HPR000079

PATIENT
  Age: 66 Year
  Sex: Male
  Weight: 65 kg

DRUGS (2)
  1. ENOXAPARIN SODIUM [Suspect]
     Active Substance: ENOXAPARIN SODIUM
     Indication: Renal impairment
     Dosage: 4000IU,QD
     Dates: start: 20240126, end: 20240130
  2. Urapidil injection [Concomitant]
     Indication: Hypertension
     Dosage: 100MG,QD
     Dates: start: 20240127, end: 20240206

REACTIONS (1)
  - Coagulopathy [Recovering/Resolving]

NARRATIVE: CASE EVENT DATE: 20240130
